FAERS Safety Report 13334680 (Version 1)
Quarter: 2017Q1

REPORT INFORMATION
  Report Type: Spontaneous
  Country: US (occurrence: US)
  Receive Date: 20170314
  Receipt Date: 20170314
  Transmission Date: 20170428
  Serious: No
  Sender: FDA-Public Use
  Company Number: GXBR2016US003542

PATIENT
  Age: 68 Year
  Sex: Female
  Weight: 77.98 kg

DRUGS (1)
  1. AMOXICILLIN AND CLAVULANATE POTASSIUM TABLETS USP [Suspect]
     Active Substance: AMOXICILLIN\CLAVULANATE POTASSIUM
     Indication: ANIMAL BITE
     Dosage: 875MG / 125MG, BID
     Route: 048
     Dates: start: 20161121, end: 20161122

REACTIONS (4)
  - Somnolence [Recovered/Resolved]
  - Feeling abnormal [Recovered/Resolved]
  - Rash [Not Recovered/Not Resolved]
  - Paraesthesia [Recovered/Resolved]

NARRATIVE: CASE EVENT DATE: 20161121
